FAERS Safety Report 9200593 (Version 1)
Quarter: 2013Q1

REPORT INFORMATION
  Report Type: Report from Study
  Country: US (occurrence: US)
  Receive Date: 20130329
  Receipt Date: 20130329
  Transmission Date: 20140127
  Serious: Yes (Death)
  Sender: FDA-Public Use
  Company Number: US-ABBOTT-13P-163-1069098-00

PATIENT
  Sex: Female
  Weight: 40.3 kg

DRUGS (1)
  1. CREON [Suspect]
     Indication: PANCREATIC CARCINOMA
     Dates: start: 20110204, end: 201210

REACTIONS (1)
  - Pancreatic carcinoma metastatic [Fatal]
